FAERS Safety Report 18346532 (Version 1)
Quarter: 2020Q4

REPORT INFORMATION
  Report Type: Spontaneous
  Country: ES (occurrence: ES)
  Receive Date: 20201006
  Receipt Date: 20201006
  Transmission Date: 20210114
  Serious: Yes (Other)
  Sender: FDA-Public Use
  Company Number: ES-CADILA HEALTHCARE LIMITED-ES-ZYDUS-056579

PATIENT

DRUGS (9)
  1. IBUPROFEN. [Concomitant]
     Active Substance: IBUPROFEN
     Indication: PRODUCT USED FOR UNKNOWN INDICATION
  2. FUCIDIN H [FUSIDIC ACID;HYDROCORTISONE ACETATE] [Concomitant]
     Indication: ERYTHEMA MULTIFORME
  3. PARACETAMOL [Concomitant]
     Active Substance: ACETAMINOPHEN
     Indication: DRUG PROVOCATION TEST
  4. LIDOCAINE. [Concomitant]
     Active Substance: LIDOCAINE
     Indication: ERYTHEMA MULTIFORME
  5. DIPROGENTA [Concomitant]
     Active Substance: BETAMETHASONE DIPROPIONATE\GENTAMICIN SULFATE
     Indication: ERYTHEMA MULTIFORME
     Dosage: UNK (0.05%/0.1%)
  6. ETORICOXIB. [Concomitant]
     Active Substance: ETORICOXIB
     Indication: BACK PAIN
     Dosage: 60 MILLIGRAM, QD (EVERY 24 HOURS)
  7. PREDNISONE. [Concomitant]
     Active Substance: PREDNISONE
     Indication: ERYTHEMA MULTIFORME
  8. TRAMADOL. [Suspect]
     Active Substance: TRAMADOL
     Indication: DRUG PROVOCATION TEST
     Dosage: 40 MILLIGRAM
     Route: 065
  9. PAZITAL [Concomitant]
     Active Substance: ACETAMINOPHEN\TRAMADOL HYDROCHLORIDE
     Indication: BACK PAIN
     Dosage: UNK, TID (EVERY 8 HOURS)

REACTIONS (1)
  - Erythema multiforme [Unknown]
